FAERS Safety Report 6156802-7 (Version None)
Quarter: 2009Q2

REPORT INFORMATION
  Report Type: 
  Country: None (occurrence: None)
  Receive Date: 20090416
  Receipt Date: 20090413
  Transmission Date: 20091009
  Serious: Yes (Other)
  Sender: FDA-Public Use
  Company Number: PHHY2009BR13910

PATIENT
  Age: 82 Year
  Sex: Male

DRUGS (1)
  1. TEGRETOL [Suspect]
     Dosage: 200 MG, UNK
     Route: 048

REACTIONS (3)
  - HEADACHE [None]
  - MUSCULAR WEAKNESS [None]
  - SENSATION OF PRESSURE [None]
